FAERS Safety Report 4550010-9 (Version None)
Quarter: 2005Q1

REPORT INFORMATION
  Report Type: 
  Country: None (occurrence: None)
  Receive Date: 20050111
  Receipt Date: 20050111
  Transmission Date: 20050727
  Serious: Yes (Life-Threatening, Hospitalization, Disabling)
  Sender: FDA-Public Use
  Company Number: None

PATIENT
  Age: 82 Year
  Sex: Female
  Weight: 74.8435 kg

DRUGS (2)
  1. CELEBREX [Suspect]
     Indication: ARTHRITIS
     Dosage: 200 MG ONCE PER DAY
     Dates: start: 20001001, end: 20041202
  2. CELEBREX [Suspect]
     Indication: CELLULITIS
     Dosage: 200 MG ONCE PER DAY
     Dates: start: 20001001, end: 20041202

REACTIONS (6)
  - CEREBROVASCULAR ACCIDENT [None]
  - FALL [None]
  - HAEMORRHAGE INTRACRANIAL [None]
  - INFREQUENT BOWEL MOVEMENTS [None]
  - RIB FRACTURE [None]
  - WRIST FRACTURE [None]
